FAERS Safety Report 8458741-5 (Version None)
Quarter: 2012Q2

REPORT INFORMATION
  Report Type: 
  Country: None (occurrence: None)
  Receive Date: 20120622
  Receipt Date: 20120615
  Transmission Date: 20120825
  Serious: Yes (Hospitalization, Other)
  Sender: FDA-Public Use
  Company Number: US-ABBOTT-12P-163-0942574-00

PATIENT
  Age: 51 Year
  Sex: Female

DRUGS (8)
  1. HUMIRA [Suspect]
     Indication: COLITIS ULCERATIVE
     Dates: start: 20081001
  2. HERBAL [Concomitant]
     Indication: PHYTOTHERAPY
  3. OMEPRAZOLE [Concomitant]
     Indication: GASTROOESOPHAGEAL REFLUX DISEASE
     Dosage: DAILY
  4. GLIPIZIDE [Concomitant]
     Indication: DIABETES MELLITUS
  5. DIABETIC MEDICATION [Concomitant]
     Indication: PRODUCT USED FOR UNKNOWN INDICATION
  6. NEXIUM [Concomitant]
     Indication: GASTROOESOPHAGEAL REFLUX DISEASE
  7. FAMOTIDINE [Concomitant]
     Indication: GASTROOESOPHAGEAL REFLUX DISEASE
     Dosage: DAILY
  8. PROTONIX [Concomitant]
     Indication: GASTROOESOPHAGEAL REFLUX DISEASE

REACTIONS (9)
  - OFF LABEL USE [None]
  - HAEMATOCHEZIA [None]
  - INJECTION SITE PAIN [None]
  - PNEUMONIA [None]
  - HAEMOGLOBIN ABNORMAL [None]
  - ABDOMINAL PAIN [None]
  - RHINORRHOEA [None]
  - COLITIS ULCERATIVE [None]
  - ANXIETY [None]
